FAERS Safety Report 7526555-6 (Version None)
Quarter: 2011Q2

REPORT INFORMATION
  Report Type: 
  Country: None (occurrence: None)
  Receive Date: 20110606
  Receipt Date: 20110524
  Transmission Date: 20111010
  Serious: Yes (Hospitalization, Disabling, Other)
  Sender: FDA-Public Use
  Company Number: US-ELI_LILLY_AND_COMPANY-US200911005412

PATIENT
  Sex: Female

DRUGS (13)
  1. ENBREL [Concomitant]
     Dosage: 50 MG, WEEKLY (1/W)
     Route: 030
     Dates: start: 20090201
  2. CALCIUM CARBONATE [Concomitant]
     Dosage: 1200 MG, 2/D
  3. FOLIC ACID [Concomitant]
  4. METHOTREXATE [Concomitant]
     Dosage: UNK, WEEKLY (1/W) 40 OR 50 MG
  5. POTASSIUM CHLORIDE [Concomitant]
  6. ALBUTEROL SULFATE AUTOHALER [Concomitant]
     Route: 055
  7. MAGNESIUM SULFATE [Concomitant]
     Dosage: UNK, UNK
     Dates: start: 20100201
  8. ANTIHYPERTENSIVES [Concomitant]
  9. FORTEO [Suspect]
     Indication: OSTEOPOROSIS
     Dosage: 20 UG, DAILY (1/D)
     Dates: start: 20091118
  10. VITAMIN D [Concomitant]
     Dosage: 2000 MG, DAILY (1/D)
  11. PREDNISONE [Concomitant]
     Dosage: 15 MG, DAILY (1/D)
     Dates: start: 20100215
  12. PULMICORT [Concomitant]
     Route: 055
  13. TORADIUR [Concomitant]

REACTIONS (18)
  - PNEUMONIA [None]
  - DIZZINESS [None]
  - BLINDNESS [None]
  - MACULAR DEGENERATION [None]
  - HYPOPHAGIA [None]
  - ARTHRITIS [None]
  - DIARRHOEA [None]
  - MUSCLE SPASMS [None]
  - ALOPECIA [None]
  - HANGNAIL [None]
  - MALAISE [None]
  - ARTHRALGIA [None]
  - VOMITING [None]
  - BLOOD POTASSIUM INCREASED [None]
  - GASTRITIS [None]
  - GAIT DISTURBANCE [None]
  - URINARY TRACT INFECTION [None]
  - NAUSEA [None]
